FAERS Safety Report 7506698-3 (Version None)
Quarter: 2011Q2

REPORT INFORMATION
  Report Type: 
  Country: None (occurrence: None)
  Receive Date: 20110414
  Receipt Date: 20110314
  Transmission Date: 20111010
  Serious: Yes (Hospitalization)
  Sender: FDA-Public Use
  Company Number: 2011NA000024

PATIENT
  Age: 45 Year
  Sex: Male

DRUGS (3)
  1. ETODOLAC [Concomitant]
  2. CAMBIA [Suspect]
     Indication: TENSION HEADACHE
     Dosage: 50 MG;PRN;PO
     Route: 048
  3. INDOMETHACIN [Concomitant]

REACTIONS (1)
  - MYOCARDIAL INFARCTION [None]
